FAERS Safety Report 11696470 (Version 1)
Quarter: 2015Q4

REPORT INFORMATION
  Report Type: Spontaneous
  Country: GB (occurrence: GB)
  Receive Date: 20151104
  Receipt Date: 20151104
  Transmission Date: 20160304
  Serious: Yes (Other)
  Sender: FDA-Public Use
  Company Number: GB-ENDO PHARMACEUTICALS INC.-2015-003719

PATIENT
  Age: 72 Year
  Sex: Male

DRUGS (3)
  1. FORTESTA [Suspect]
     Active Substance: TESTOSTERONE
     Indication: BLOOD TESTOSTERONE DECREASED
     Route: 065
     Dates: start: 2009, end: 20150929
  2. ANTIHYPERTENSIVES [Concomitant]
     Active Substance: UNSPECIFIED INGREDIENT
     Indication: HYPERTENSION
     Route: 065
  3. FORTESTA [Suspect]
     Active Substance: TESTOSTERONE
     Indication: POLYCYTHAEMIA
     Route: 065
     Dates: start: 2007, end: 2009

REACTIONS (5)
  - Off label use [Recovered/Resolved]
  - Diverticulitis [Unknown]
  - Hyperhidrosis [Unknown]
  - Drug effect decreased [Unknown]
  - Night sweats [Unknown]

NARRATIVE: CASE EVENT DATE: 2009
